FAERS Safety Report 18000323 (Version 1)
Quarter: 2020Q3

REPORT INFORMATION
  Report Type: Spontaneous
  Country: US (occurrence: US)
  Receive Date: 20200709
  Receipt Date: 20200709
  Transmission Date: 20201103
  Serious: Yes (Hospitalization)
  Sender: FDA-Public Use
  Company Number: None

PATIENT
  Age: 58 Year
  Sex: Male

DRUGS (10)
  1. GABAPENTIN. [Concomitant]
     Active Substance: GABAPENTIN
  2. ALLOPURINOL. [Concomitant]
     Active Substance: ALLOPURINOL
  3. COLCHINE [Concomitant]
     Active Substance: COLCHICINE
  4. FUROSEMIDE. [Concomitant]
     Active Substance: FUROSEMIDE
  5. TORSEMIDE. [Concomitant]
     Active Substance: TORSEMIDE
  6. LASIX [Concomitant]
     Active Substance: FUROSEMIDE
  7. UPTRAVI [Concomitant]
     Active Substance: SELEXIPAG
  8. AMBRISENTAN [Suspect]
     Active Substance: AMBRISENTAN
     Indication: PULMONARY ARTERIAL HYPERTENSION
     Route: 048
     Dates: start: 20191204
  9. POT CL MIRCO [Concomitant]
  10. METOLAZONE. [Concomitant]
     Active Substance: METOLAZONE

REACTIONS (1)
  - Inguinal hernia [None]

NARRATIVE: CASE EVENT DATE: 20200707
